FAERS Safety Report 18762832 (Version 1)
Quarter: 2021Q1

REPORT INFORMATION
  Report Type: Spontaneous
  Country: ES (occurrence: ES)
  Receive Date: 20210120
  Receipt Date: 20210120
  Transmission Date: 20210419
  Serious: Yes (Other)
  Sender: FDA-Public Use
  Company Number: NVSC2021ES011054

PATIENT
  Age: 58 Year
  Sex: Female

DRUGS (5)
  1. LAMICTAL [Concomitant]
     Active Substance: LAMOTRIGINE
     Indication: EPILEPSY
     Dosage: 300 MG, QD (56 COMPRIMIDOS)
     Route: 048
  2. CLARITHROMYCIN. [Interacting]
     Active Substance: CLARITHROMYCIN
     Indication: OESOPHAGITIS
     Dosage: 500 MG, QD
     Route: 048
     Dates: start: 20201026, end: 20201027
  3. AMOXICILLIN. [Concomitant]
     Active Substance: AMOXICILLIN
     Indication: OESOPHAGITIS
     Dosage: 1 G, QD
     Route: 048
     Dates: start: 20201026
  4. TEGRETOL [Suspect]
     Active Substance: CARBAMAZEPINE
     Indication: EPILEPSY
     Dosage: 400 MG, Q8H
     Route: 048
     Dates: start: 20150922
  5. OMEPRAZOL [Interacting]
     Active Substance: OMEPRAZOLE
     Indication: OESOPHAGITIS
     Dosage: 40 MG, Q12H
     Route: 048
     Dates: start: 20201026, end: 20201027

REACTIONS (3)
  - Balance disorder [Recovered/Resolved]
  - Nausea [Recovered/Resolved]
  - Vomiting [Recovered/Resolved]

NARRATIVE: CASE EVENT DATE: 20201027
